FAERS Safety Report 18686272 (Version 2)
Quarter: 2021Q3

REPORT INFORMATION
  Report Type: Other
  Country: SE (occurrence: SE)
  Receive Date: 20201231
  Receipt Date: 20210712
  Transmission Date: 20211014
  Serious: Yes (Other)
  Sender: FDA-Public Use
  Company Number: SE-ROCHE-2739968

PATIENT
  Age: 158 Month
  Sex: Female

DRUGS (11)
  1. ETOPOSIDE. [Suspect]
     Active Substance: ETOPOSIDE
     Indication: ACUTE LYMPHOCYTIC LEUKAEMIA
     Route: 065
  2. DEXAMETHASONE. [Concomitant]
     Active Substance: DEXAMETHASONE
     Indication: PROPHYLAXIS OF NAUSEA AND VOMITING
  3. MELPHALAN. [Suspect]
     Active Substance: MELPHALAN
     Indication: ACUTE LYMPHOCYTIC LEUKAEMIA
     Route: 065
  4. MYCOPHENOLATE MOFETIL. [Suspect]
     Active Substance: MYCOPHENOLATE MOFETIL
     Indication: ACUTE LYMPHOCYTIC LEUKAEMIA
     Route: 065
  5. RITUXIMAB. [Suspect]
     Active Substance: RITUXIMAB
     Indication: PROPHYLAXIS AGAINST TRANSPLANT REJECTION
  6. CYCLOPHOSPHAMIDE. [Suspect]
     Active Substance: CYCLOPHOSPHAMIDE
     Indication: ACUTE LYMPHOCYTIC LEUKAEMIA
     Route: 065
  7. MYCOPHENOLATE MOFETIL. [Suspect]
     Active Substance: MYCOPHENOLATE MOFETIL
     Indication: PROPHYLAXIS AGAINST TRANSPLANT REJECTION
  8. CLOFARABINE. [Suspect]
     Active Substance: CLOFARABINE
     Indication: ACUTE LYMPHOCYTIC LEUKAEMIA
     Route: 065
  9. THIOTEPA. [Suspect]
     Active Substance: THIOTEPA
     Indication: ACUTE LYMPHOCYTIC LEUKAEMIA
     Route: 065
  10. ANTITHYMOCYTE IMMUNOGLOBULIN [Suspect]
     Active Substance: THYMOCYTE IMMUNE GLOBULIN NOS
     Indication: ACUTE LYMPHOCYTIC LEUKAEMIA
     Dosage: FROM DAY ?12 TO DAY ?10
     Route: 065
  11. RITUXIMAB. [Suspect]
     Active Substance: RITUXIMAB
     Indication: ACUTE LYMPHOCYTIC LEUKAEMIA
     Dosage: SINGLE DOSE ON DAY+1
     Route: 041

REACTIONS (5)
  - Thrombocytopenia [Unknown]
  - Pancytopenia [Unknown]
  - Pyrexia [Unknown]
  - Neutropenia [Unknown]
  - Viral infection [Unknown]
